FAERS Safety Report 17840099 (Version 1)
Quarter: 2020Q2

REPORT INFORMATION
  Report Type: Spontaneous
  Country: US (occurrence: US)
  Receive Date: 20200529
  Receipt Date: 20200529
  Transmission Date: 20200714
  Serious: No
  Sender: FDA-Public Use
  Company Number: None

PATIENT
  Age: 33 Year
  Sex: Female
  Weight: 67.5 kg

DRUGS (2)
  1. FLONASE [Concomitant]
     Active Substance: FLUTICASONE PROPIONATE
  2. HEB HEARTBURN RELIEF 24 HOUR(TM) LANSOPRAZOLE DELAYED-RELEASE CAPSULES [Suspect]
     Active Substance: LANSOPRAZOLE
     Indication: GASTROOESOPHAGEAL REFLUX DISEASE
     Dosage: ?          QUANTITY:1 CAPSULE(S);?
     Route: 048
     Dates: start: 20200301, end: 20200528

REACTIONS (5)
  - Suspected counterfeit product [None]
  - Drug ineffective [None]
  - Product substitution issue [None]
  - Maternal exposure during pregnancy [None]
  - Feeling abnormal [None]

NARRATIVE: CASE EVENT DATE: 20200528
